FAERS Safety Report 10548485 (Version 2)
Quarter: 2014Q4

REPORT INFORMATION
  Report Type: Spontaneous
  Country: US (occurrence: US)
  Receive Date: 20141028
  Receipt Date: 20141111
  Transmission Date: 20150529
  Serious: Yes (Other)
  Sender: FDA-Public Use
  Company Number: US-AMGEN-USASP2014082069

PATIENT
  Age: 75 Year
  Sex: Female
  Weight: 77.1 kg

DRUGS (3)
  1. PROLIA [Suspect]
     Active Substance: DENOSUMAB
     Indication: OSTEOPOROSIS
     Dosage: UNK
     Route: 065
     Dates: start: 201212
  2. SYNTHROID [Concomitant]
     Active Substance: LEVOTHYROXINE SODIUM
     Indication: HYPOTHYROIDISM
     Dosage: 150 MG, QD
  3. THYROXINE [Concomitant]
     Active Substance: LEVOTHYROXINE
     Indication: HYPOTHYROIDISM
     Dosage: 150 MUG, UNK

REACTIONS (9)
  - Nodule [Unknown]
  - Spindle cell sarcoma [Unknown]
  - Pulmonary function test abnormal [Unknown]
  - Skin disorder [Unknown]
  - Anxiety [Unknown]
  - Insomnia [Unknown]
  - Dyspnoea [Unknown]
  - Inappropriate schedule of drug administration [Unknown]
  - Psoriasis [Unknown]

NARRATIVE: CASE EVENT DATE: 2014
